FAERS Safety Report 14343305 (Version 2)
Quarter: 2018Q1

REPORT INFORMATION
  Report Type: Spontaneous
  Country: US (occurrence: US)
  Receive Date: 20180102
  Receipt Date: 20180111
  Transmission Date: 20180509
  Serious: Yes (Other)
  Sender: FDA-Public Use
  Company Number: US-GILEAD-2017-0312809

PATIENT
  Age: 34 Year
  Sex: Male

DRUGS (3)
  1. ADALAT CC [Concomitant]
     Active Substance: NIFEDIPINE
  2. TRUVADA [Suspect]
     Active Substance: EMTRICITABINE\TENOFOVIR DISOPROXIL FUMARATE
     Indication: PROPHYLAXIS AGAINST HIV INFECTION
     Dosage: 1 DF, QD
     Route: 065
     Dates: start: 20140107, end: 20171213
  3. LUNESTA [Concomitant]
     Active Substance: ESZOPICLONE

REACTIONS (2)
  - Drug ineffective [Unknown]
  - Acute HIV infection [Unknown]

NARRATIVE: CASE EVENT DATE: 20171212
